FAERS Safety Report 22274087 (Version 1)
Quarter: 2023Q2

REPORT INFORMATION
  Report Type: Spontaneous
  Country: PL (occurrence: PL)
  Receive Date: 20230502
  Receipt Date: 20230502
  Transmission Date: 20230722
  Serious: Yes (Hospitalization)
  Sender: FDA-Public Use
  Company Number: None

PATIENT

DRUGS (4)
  1. ONCASPAR [Suspect]
     Active Substance: PEGASPARGASE
     Indication: Acute lymphocytic leukaemia
     Dosage: 1875 [IU]
     Route: 042
     Dates: end: 20220121
  2. ESSENTIALE FORTE [Concomitant]
     Indication: Hepatotoxicity
     Dosage: THERAPY ONGOING
     Route: 065
     Dates: start: 20211201
  3. BISEPTOL [Concomitant]
     Active Substance: SULFAMETHOXAZOLE\TRIMETHOPRIM
     Indication: Acute lymphocytic leukaemia
     Dosage: THERAPY ONGOING
     Route: 048
     Dates: start: 20210801
  4. DEXAMETHASONE [Concomitant]
     Active Substance: DEXAMETHASONE
     Indication: Acute lymphocytic leukaemia
     Dosage: THERAPY ONGOING
     Route: 065
     Dates: start: 20220112

REACTIONS (5)
  - Cyanosis [Recovered/Resolved]
  - Cough [Recovered/Resolved]
  - Erythema [Recovered/Resolved]
  - Hypersensitivity [Recovered/Resolved]
  - Anxiety [Recovered/Resolved]

NARRATIVE: CASE EVENT DATE: 20220121
